FAERS Safety Report 7527079-2 (Version None)
Quarter: 2011Q2

REPORT INFORMATION
  Report Type: 
  Country: None (occurrence: None)
  Receive Date: 20110606
  Receipt Date: 20110524
  Transmission Date: 20111010
  Serious: Yes (Other)
  Sender: FDA-Public Use
  Company Number: IE-AMGEN-IRLSP2011026754

PATIENT
  Sex: Male

DRUGS (6)
  1. ARANESP [Suspect]
  2. ARANESP [Suspect]
     Indication: RENAL FAILURE CHRONIC
     Dosage: 150 A?G, QWK
     Dates: start: 20110101
  3. CARDICOR [Concomitant]
  4. TRITACE [Concomitant]
  5. FRUSEMIDE                          /00032601/ [Concomitant]
     Dosage: 40 A?G, UNK
  6. LIPITOR [Concomitant]

REACTIONS (1)
  - DEAFNESS [None]
